FAERS Safety Report 11661715 (Version 4)
Quarter: 2015Q4

REPORT INFORMATION
  Report Type: Spontaneous
  Country: JP (occurrence: JP)
  Receive Date: 20151026
  Receipt Date: 20151106
  Transmission Date: 20160304
  Serious: Yes (Hospitalization)
  Sender: FDA-Public Use
  Company Number: JP-BAYER-2015-445490

PATIENT
  Age: 85 Year
  Sex: Male

DRUGS (7)
  1. NIFEDIPINE. [Suspect]
     Active Substance: NIFEDIPINE
     Dosage: 20 MG, BID AFTER MEAL
     Route: 048
  2. IMIDAPRIL HYDROCHLORIDE [Concomitant]
     Active Substance: IMIDAPRIL HYDROCHLORIDE
     Dosage: 5 MG, OM AFTER MEAL
     Route: 048
  3. FUROSEMIDE. [Concomitant]
     Active Substance: FUROSEMIDE
     Dosage: 40 MG, OM AFTER MEAL
     Route: 048
  4. CARVEDILOL. [Concomitant]
     Active Substance: CARVEDILOL
     Dosage: 10 MG, BID 1/2 IN EVERY MORNING AFTER MEAL AND 1/2 IN EVERY EVENING AFTER MEAL
     Route: 048
  5. WARFARIN POTASSIUM [Interacting]
     Active Substance: WARFARIN POTASSIUM
     Dosage: 3.5 MG, OM AFTER MEAL
     Route: 048
  6. NICORANDIL [Concomitant]
     Active Substance: NICORANDIL
     Dosage: 5 MG, TID
     Route: 048
  7. BAYASPIRIN [Interacting]
     Active Substance: ASPIRIN
     Dosage: 100 MG, OM AFTER MEAL
     Route: 048

REACTIONS (7)
  - Contusion [Recovered/Resolved]
  - Subdural haematoma [Recovering/Resolving]
  - Hemiparesis [Recovering/Resolving]
  - Labelled drug-drug interaction medication error [None]
  - Headache [Recovering/Resolving]
  - Fall [Recovered/Resolved]
  - Gait disturbance [Recovering/Resolving]
